FAERS Safety Report 7203507-7 (Version None)
Quarter: 2010Q4

REPORT INFORMATION
  Report Type: 
  Country: None (occurrence: None)
  Receive Date: 20101230
  Receipt Date: 20101222
  Transmission Date: 20110411
  Serious: Yes (Hospitalization)
  Sender: FDA-Public Use
  Company Number: FR-BRISTOL-MYERS SQUIBB COMPANY-15458110

PATIENT
  Age: 46 Year
  Sex: Male

DRUGS (22)
  1. TAXOL [Suspect]
     Route: 042
     Dates: start: 20100905
  2. FARMORUBICINE [Suspect]
     Route: 042
     Dates: start: 20100905
  3. OXYNORM [Suspect]
     Indication: ANALGESIC THERAPY
     Dosage: 15 MG OVER 1 HOUR
     Route: 042
     Dates: start: 20101023
  4. LYRICA [Suspect]
     Route: 048
     Dates: start: 20101023
  5. PROFENID [Suspect]
     Dosage: PROFENID 100MG 1/D IV ON 05NOV2010.
     Route: 042
     Dates: start: 20101023, end: 20101025
  6. SOLUPRED [Suspect]
     Route: 048
     Dates: start: 20101024
  7. MOPRAL [Suspect]
     Route: 048
     Dates: start: 20101023, end: 20101025
  8. ATARAX [Suspect]
     Dosage: 1 DF=100MG/2ML,25 AND 26 OCT2010.
     Route: 042
     Dates: start: 20101025
  9. LOVENOX [Suspect]
     Route: 042
     Dates: start: 20101101, end: 20101107
  10. AMLOR [Concomitant]
     Dosage: AMLOR CAPSULE
     Dates: start: 20101107
  11. LASIX [Concomitant]
     Dosage: 1 DF=LASILIX SPECIAL 250MG/25ML,ALSO TAKEN 20MG/2ML 3 PER DAY 0N 05NOV2010.
     Route: 042
     Dates: start: 20101109
  12. PERFALGAN [Concomitant]
     Dosage: 1 DF=10MG/ML
     Route: 042
     Dates: start: 20101101, end: 20101106
  13. ACUPAN [Concomitant]
     Route: 042
     Dates: start: 20101106
  14. BRISTOPEN [Concomitant]
     Dates: start: 20101101
  15. ABSTRAL [Concomitant]
     Route: 060
     Dates: start: 20101101
  16. CIPROFLOXACIN HYDROCHLORIDE [Concomitant]
     Dosage: CIFLIX 500MG TABLET
     Route: 048
     Dates: start: 20101101
  17. STILNOX [Concomitant]
  18. FORLAX [Concomitant]
  19. SPASFON [Concomitant]
  20. SOLUDACTONE [Concomitant]
  21. HUMALOG [Concomitant]
  22. CALCIPARINE [Concomitant]

REACTIONS (4)
  - CALCULUS URINARY [None]
  - NEPHROTIC SYNDROME [None]
  - RENAL FAILURE ACUTE [None]
  - SEPSIS [None]
